FAERS Safety Report 7540844-0 (Version None)
Quarter: 2011Q2

REPORT INFORMATION
  Report Type: 
  Country: None (occurrence: None)
  Receive Date: 20110610
  Receipt Date: 20110531
  Transmission Date: 20111010
  Serious: Yes (Other)
  Sender: FDA-Public Use
  Company Number: DE-ROCHE-781413

PATIENT
  Sex: Male

DRUGS (2)
  1. AVASTIN [Suspect]
     Indication: RENAL CELL CARCINOMA
     Route: 065
  2. ROFERON-A [Suspect]
     Indication: RENAL CELL CARCINOMA
     Route: 065

REACTIONS (2)
  - TRANSAMINASES INCREASED [None]
  - METASTASES TO LIVER [None]
